FAERS Safety Report 9233077 (Version 1)
Quarter: 2013Q2

REPORT INFORMATION
  Report Type: Report from Study
  Country: BR (occurrence: BR)
  Receive Date: 20130416
  Receipt Date: 20130416
  Transmission Date: 20140414
  Serious: Yes (Other)
  Sender: FDA-Public Use
  Company Number: PHHY2013BR035959

PATIENT
  Sex: Female

DRUGS (10)
  1. GALVUS [Suspect]
     Dosage: 2 DF, DAILY (VILD 50 MG)
     Dates: start: 20130409
  2. DIOVAN [Suspect]
     Dosage: 2 DF, DAILY
  3. METFORMIN [Suspect]
     Dosage: UNK UKN, IN MEALS
  4. AMLODIPINE [Suspect]
     Dosage: 2 DF, DAILY
  5. ATENOLOL [Suspect]
     Dosage: 2 DF, DAILY
  6. ASPIRIN [Suspect]
     Dosage: 1 DF, DAILY
  7. ACARBOSE [Suspect]
     Dosage: 2 DF, DAILY
  8. SUSTRATE [Suspect]
     Dosage: 3 DF, DAILY
  9. VASTAREL [Suspect]
     Dosage: 2 DF, DAILY
  10. VASTAREL [Suspect]
     Dosage: 2 DF, DAILY

REACTIONS (1)
  - Arterial occlusive disease [Recovering/Resolving]
